FAERS Safety Report 5887253-8 (Version None)
Quarter: 2008Q3

REPORT INFORMATION
  Report Type: 
  Country: None (occurrence: None)
  Receive Date: 20080915
  Receipt Date: 20080909
  Transmission Date: 20090109
  Serious: Yes (Hospitalization)
  Sender: FDA-Public Use
  Company Number: 2008BI016934

PATIENT
  Age: 52 Year
  Sex: Female

DRUGS (1)
  1. TYSABRI [Suspect]
     Indication: MULTIPLE SCLEROSIS
     Dosage: 300 MG;QM;IV
     Route: 042
     Dates: start: 20080521

REACTIONS (8)
  - CONDITION AGGRAVATED [None]
  - CYSTITIS [None]
  - GAIT DISTURBANCE [None]
  - GASTROENTERITIS VIRAL [None]
  - INFLUENZA [None]
  - MULTIPLE SCLEROSIS [None]
  - OVERDOSE [None]
  - WEIGHT DECREASED [None]
